FAERS Safety Report 15427248 (Version 3)
Quarter: 2018Q4

REPORT INFORMATION
  Report Type: Spontaneous
  Country: PT (occurrence: PT)
  Receive Date: 20180925
  Receipt Date: 20181109
  Transmission Date: 20190204
  Serious: Yes (Other)
  Sender: FDA-Public Use
  Company Number: PHHY2018PT106889

PATIENT
  Age: 32 Year
  Sex: Female

DRUGS (2)
  1. SALMETEROL/FLUTICASONE [Suspect]
     Active Substance: FLUTICASONE PROPIONATE\SALMETEROL XINAFOATE
     Indication: PRODUCT USED FOR UNKNOWN INDICATION
     Route: 065
  2. DESLORATADINE. [Suspect]
     Active Substance: DESLORATADINE
     Indication: PRODUCT USED FOR UNKNOWN INDICATION
     Route: 065

REACTIONS (6)
  - Subcutaneous emphysema [Unknown]
  - Pneumomediastinum [Unknown]
  - Dizziness [Unknown]
  - Chest pain [Unknown]
  - Crepitations [Unknown]
  - Dyspnoea [Unknown]
